FAERS Safety Report 9532400 (Version 1)
Quarter: 2013Q3

REPORT INFORMATION
  Report Type: Spontaneous
  Country: CH (occurrence: CH)
  Receive Date: 20130918
  Receipt Date: 20130918
  Transmission Date: 20140515
  Serious: Yes (Hospitalization, Other)
  Sender: FDA-Public Use
  Company Number: CH-JNJFOC-20130909397

PATIENT
  Age: 63 Year
  Sex: Male

DRUGS (4)
  1. RIVAROXABAN [Suspect]
     Indication: PRODUCT USED FOR UNKNOWN INDICATION
     Dosage: 1960 MG
     Route: 048
  2. QUETIAPINE [Concomitant]
     Route: 048
  3. ZOLPIDEM [Concomitant]
     Route: 065
  4. DIAZEPAM [Concomitant]
     Route: 048

REACTIONS (6)
  - Suicide attempt [Unknown]
  - Intentional overdose [Unknown]
  - Atrial fibrillation [Unknown]
  - Thrombocytopenia [Unknown]
  - Coagulation time prolonged [Unknown]
  - Drug level increased [Unknown]
